FAERS Safety Report 6542994-4 (Version None)
Quarter: 2010Q1

REPORT INFORMATION
  Report Type: 
  Country: None (occurrence: None)
  Receive Date: 20100120
  Receipt Date: 20100111
  Transmission Date: 20100710
  Serious: Yes (Hospitalization)
  Sender: FDA-Public Use
  Company Number: US-ROCHE-678935

PATIENT
  Sex: Male

DRUGS (1)
  1. FUZEON [Suspect]
     Indication: DRUG USE FOR UNKNOWN INDICATION
     Route: 065

REACTIONS (5)
  - COMA [None]
  - DIZZINESS [None]
  - HEART RATE INCREASED [None]
  - HYPOVENTILATION [None]
  - QUADRIPLEGIA [None]
